FAERS Safety Report 9443893 (Version 6)
Quarter: 2014Q2

REPORT INFORMATION
  Report Type: Report from Study
  Country: GB (occurrence: GB)
  Receive Date: 20130806
  Receipt Date: 20140611
  Transmission Date: 20141212
  Serious: Yes (Hospitalization)
  Sender: FDA-Public Use
  Company Number: GB-ROCHE-1257626

PATIENT
  Age: 71 Year
  Sex: Female
  Weight: 41 kg

DRUGS (9)
  1. BEVACIZUMAB [Suspect]
     Indication: COLORECTAL CANCER METASTATIC
     Route: 042
     Dates: start: 20130327, end: 20130723
  2. OMEPRAZOLE [Concomitant]
     Route: 048
  3. ALENDRONIC ACID [Concomitant]
     Indication: OSTEOPOROSIS
     Route: 048
  4. AMLODIPINE [Concomitant]
     Indication: HYPERTENSION
     Route: 048
  5. FLUOXETINE [Concomitant]
     Indication: DEPRESSION
     Route: 048
  6. BECONASE [Concomitant]
     Indication: RHINITIS ALLERGIC
     Dosage: 1 SPRAY
     Route: 045
  7. VENTOLIN [Concomitant]
     Indication: CHRONIC OBSTRUCTIVE PULMONARY DISEASE
     Dosage: 1-2 PUFFS
     Route: 055
  8. PARACETAMOL [Concomitant]
     Indication: PAIN
     Route: 048
  9. CODEINE PHOSPHATE [Concomitant]
     Indication: PAIN
     Route: 048

REACTIONS (1)
  - Fall [Recovered/Resolved]
